FAERS Safety Report 7256132-6 (Version None)
Quarter: 2011Q1

REPORT INFORMATION
  Report Type: 
  Country: None (occurrence: None)
  Receive Date: 20110129
  Receipt Date: 20100528
  Transmission Date: 20110831
  Serious: No
  Sender: FDA-Public Use
  Company Number: US-ABBOTT-10P-163-0648756-00

PATIENT
  Sex: Female
  Weight: 81.72 kg

DRUGS (6)
  1. PREDNISONE [Concomitant]
     Indication: RHEUMATOID ARTHRITIS
  2. CORTISONE [Concomitant]
     Indication: PRODUCT USED FOR UNKNOWN INDICATION
  3. SULFASALAZINE [Concomitant]
     Indication: RHEUMATOID ARTHRITIS
  4. HUMIRA [Suspect]
     Indication: RHEUMATOID ARTHRITIS
     Dates: start: 20040101
  5. METHIMAZOLE [Concomitant]
     Indication: HYPERTENSION
  6. FOSAMAX [Concomitant]
     Indication: OSTEOPOROSIS

REACTIONS (3)
  - PAIN IN EXTREMITY [None]
  - LOCALISED INFECTION [None]
  - ILL-DEFINED DISORDER [None]
